FAERS Safety Report 4466923-2 (Version None)
Quarter: 2004Q3

REPORT INFORMATION
  Report Type: 
  Country: None (occurrence: None)
  Receive Date: 20040930
  Receipt Date: 20040916
  Transmission Date: 20050211
  Serious: Yes (Other)
  Sender: FDA-Public Use
  Company Number: 201772

PATIENT
  Age: 53 Year
  Sex: Female
  Weight: 76.2043 kg

DRUGS (11)
  1. AVONEX [Suspect]
     Indication: MULTIPLE SCLEROSIS
     Dosage: 30 MCG QW IM
     Route: 030
     Dates: start: 20010101, end: 20040101
  2. AVONEX [Suspect]
     Indication: MULTIPLE SCLEROSIS
     Dosage: 30 MCG QW IM
     Route: 030
     Dates: start: 20040101
  3. LUVOX [Concomitant]
  4. XANAX [Concomitant]
  5. MULTIVITAMIN [Concomitant]
  6. EVENING PRIMROSE OIL [Concomitant]
  7. CALCIUM [Concomitant]
  8. ACIDOPHILUS ^ZYMA^ [Concomitant]
  9. CLONAZEPAM [Concomitant]
  10. ZOLOFT [Concomitant]
  11. POTASSIUM [Concomitant]

REACTIONS (19)
  - DEPRESSION [None]
  - DYSPNOEA EXERTIONAL [None]
  - FAMILY STRESS [None]
  - HYPOKALAEMIC SYNDROME [None]
  - HYPOTENSION [None]
  - INJECTION SITE HAEMORRHAGE [None]
  - INJECTION SITE REACTION [None]
  - JOINT SWELLING [None]
  - MITRAL VALVE INCOMPETENCE [None]
  - MULTIPLE SCLEROSIS [None]
  - MULTIPLE SCLEROSIS RELAPSE [None]
  - NARCOLEPSY [None]
  - OEDEMA PERIPHERAL [None]
  - OSTEOARTHRITIS [None]
  - PROTEINURIA [None]
  - ROAD TRAFFIC ACCIDENT [None]
  - SPIDER VEIN [None]
  - THYROID NEOPLASM [None]
  - TRICUSPID VALVE INCOMPETENCE [None]
